FAERS Safety Report 14099143 (Version 7)
Quarter: 2018Q2

REPORT INFORMATION
  Report Type: Spontaneous
  Country: FR (occurrence: FR)
  Receive Date: 20171017
  Receipt Date: 20180515
  Transmission Date: 20180711
  Serious: Yes (Death, Other)
  Sender: FDA-Public Use
  Company Number: FR-TAKEDA-2017MPI009113

PATIENT
  Age: 63 Year
  Sex: Female

DRUGS (10)
  1. VELCADE [Suspect]
     Active Substance: BORTEZOMIB
     Indication: GASTROINTESTINAL AMYLOIDOSIS
  2. LENALIDOMIDE [Suspect]
     Active Substance: LENALIDOMIDE
     Indication: KAPOSI^S SARCOMA
  3. RIBAVIRIN. [Concomitant]
     Active Substance: RIBAVIRIN
     Indication: HEPATITIS C
     Dosage: UNK
     Route: 065
  4. CYCLOPHOSPHAMIDE. [Suspect]
     Active Substance: CYCLOPHOSPHAMIDE
     Indication: RENAL AMYLOIDOSIS
     Dosage: 500 MG, UNK
     Route: 048
     Dates: start: 201308
  5. VELCADE [Suspect]
     Active Substance: BORTEZOMIB
     Indication: RENAL AMYLOIDOSIS
     Dosage: 1.3 MG/M2, UNK
     Route: 058
     Dates: start: 201308, end: 2014
  6. LENALIDOMIDE [Suspect]
     Active Substance: LENALIDOMIDE
     Indication: PARAPROTEINAEMIA
     Dosage: 5 MG, 3/WEEK
     Route: 065
     Dates: start: 201401
  7. DEXAMETHASONE. [Suspect]
     Active Substance: DEXAMETHASONE
     Indication: RENAL AMYLOIDOSIS
     Dosage: 20 MG, 2/WEEK
     Route: 048
     Dates: start: 201308
  8. DEXAMETHASONE. [Suspect]
     Active Substance: DEXAMETHASONE
     Indication: PARAPROTEINAEMIA
  9. DEXAMETHASONE. [Suspect]
     Active Substance: DEXAMETHASONE
     Indication: GASTROINTESTINAL AMYLOIDOSIS
     Dosage: 20 MG, 1/WEEK
     Route: 048
     Dates: start: 201401
  10. CYCLOPHOSPHAMIDE. [Suspect]
     Active Substance: CYCLOPHOSPHAMIDE
     Indication: GASTROINTESTINAL AMYLOIDOSIS

REACTIONS (9)
  - Papule [Fatal]
  - Renal impairment [Fatal]
  - Kaposi^s sarcoma [Fatal]
  - Infection reactivation [Fatal]
  - Septic shock [Fatal]
  - Skin lesion [Fatal]
  - Enterococcal bacteraemia [Fatal]
  - Human herpesvirus 8 infection [Fatal]
  - Off label use [Unknown]

NARRATIVE: CASE EVENT DATE: 201310
